FAERS Safety Report 24968987 (Version 2)
Quarter: 2025Q1

REPORT INFORMATION
  Report Type: Spontaneous
  Country: US (occurrence: US)
  Receive Date: 20250214
  Receipt Date: 20250219
  Transmission Date: 20250409
  Serious: Yes (Hospitalization)
  Sender: TEVA
  Company Number: US-TEVA-VS-3295161

PATIENT
  Age: 24 Year
  Sex: Male

DRUGS (1)
  1. UZEDY [Suspect]
     Active Substance: RISPERIDONE
     Indication: Schizophrenia
     Dosage: STRENGTH:100 MG / 0.28 ML
     Route: 065
     Dates: start: 20250114

REACTIONS (3)
  - Mania [Not Recovered/Not Resolved]
  - Drug ineffective [Unknown]
  - Symptom recurrence [Not Recovered/Not Resolved]

NARRATIVE: CASE EVENT DATE: 20250101
